FAERS Safety Report 9522363 (Version 1)
Quarter: 2013Q3

REPORT INFORMATION
  Report Type: Spontaneous
  Country: US (occurrence: None)
  Receive Date: 20130911
  Receipt Date: 20130911
  Transmission Date: 20140515
  Serious: No
  Sender: FDA-Public Use
  Company Number: AEUSA201200439

PATIENT
  Age: 68 Year
  Sex: Male
  Weight: 136.08 kg

DRUGS (6)
  1. GAMUNEX-C (10 PCT) [Suspect]
     Indication: CHRONIC INFLAMMATORY DEMYELINATING POLYRADICULONEUROPATHY
     Route: 042
     Dates: start: 201203
  2. PROTONIX [Concomitant]
  3. LANTUS [Concomitant]
  4. METFORMIN [Concomitant]
  5. HYDROCHLOROTHIAZIDE W/ LISINOPRIL [Concomitant]
  6. BYSTOLIC [Concomitant]

REACTIONS (1)
  - Drug ineffective [None]
